FAERS Safety Report 16189541 (Version 7)
Quarter: 2021Q3

REPORT INFORMATION
  Report Type: Spontaneous
  Country: US (occurrence: US)
  Receive Date: 20190412
  Receipt Date: 20210726
  Transmission Date: 20211014
  Serious: No
  Sender: FDA-Public Use
  Company Number: US-PFIZER INC-2019151968

PATIENT
  Age: 55 Year
  Sex: Female

DRUGS (1)
  1. XELJANZ XR [Suspect]
     Active Substance: TOFACITINIB CITRATE
     Indication: RHEUMATOID ARTHRITIS
     Dosage: 11 MG, UNK

REACTIONS (17)
  - Appetite disorder [Unknown]
  - Blood antidiuretic hormone decreased [Unknown]
  - Product dose omission issue [Unknown]
  - Fatigue [Unknown]
  - Disturbance in attention [Unknown]
  - Depression [Unknown]
  - Memory impairment [Unknown]
  - Hypersensitivity [Unknown]
  - Dyspnoea [Recovered/Resolved]
  - Feeling abnormal [Unknown]
  - Sensitivity to weather change [Unknown]
  - Middle insomnia [Unknown]
  - Drug ineffective [Not Recovered/Not Resolved]
  - Rash [Recovered/Resolved]
  - Nasopharyngitis [Unknown]
  - Thinking abnormal [Unknown]
  - Pain in extremity [Unknown]
